FAERS Safety Report 9540586 (Version 1)
Quarter: 2013Q3

REPORT INFORMATION
  Report Type: Spontaneous
  Country: US (occurrence: US)
  Receive Date: 20130920
  Receipt Date: 20130920
  Transmission Date: 20140515
  Serious: No
  Sender: FDA-Public Use
  Company Number: US-PFIZER INC-2013269913

PATIENT
  Age: 55 Year
  Sex: Female
  Weight: 37.19 kg

DRUGS (2)
  1. DILANTIN-125 [Suspect]
     Indication: EPILEPSY
     Dosage: UNK
  2. DILANTIN-125 [Suspect]
     Dosage: 100MG, DAILY

REACTIONS (1)
  - Gingival atrophy [Not Recovered/Not Resolved]
